FAERS Safety Report 8964333 (Version 1)
Quarter: 2012Q4

REPORT INFORMATION
  Report Type: 
  Country: US (occurrence: US)
  Receive Date: 20121214
  Receipt Date: 20121214
  Transmission Date: 20130627
  Serious: No
  Sender: FDA-Public Use
  Company Number: US-GLAXOSMITHKLINE-A0971154A

PATIENT
  Age: 77 Year
  Sex: Male

DRUGS (7)
  1. AVODART [Suspect]
     Indication: PROSTATOMEGALY
     Dosage: 1CAP Per day
     Route: 048
     Dates: start: 201202
  2. LOSARTAN [Suspect]
     Indication: HYPERTENSION
     Dosage: 50MG Per day
     Route: 048
     Dates: start: 2011
  3. NIACIN [Concomitant]
  4. PLAVIX [Concomitant]
  5. SIMVASTATIN [Concomitant]
  6. FISH OIL [Concomitant]
  7. VITAMIN D [Concomitant]

REACTIONS (5)
  - Cough [Recovering/Resolving]
  - Throat irritation [Unknown]
  - Lip dry [Unknown]
  - Rhinorrhoea [Unknown]
  - Sleep disorder [Unknown]
